FAERS Safety Report 10220927 (Version 1)
Quarter: 2014Q2

REPORT INFORMATION
  Report Type: Spontaneous
  Country: DE (occurrence: DE)
  Receive Date: 20140606
  Receipt Date: 20140606
  Transmission Date: 20141212
  Serious: Yes (Hospitalization)
  Sender: FDA-Public Use
  Company Number: DE-ELI_LILLY_AND_COMPANY-DE201405009209

PATIENT
  Age: 47 Year
  Sex: Male

DRUGS (6)
  1. OLANZAPINE [Suspect]
     Indication: PRODUCT USED FOR UNKNOWN INDICATION
     Dosage: 5 MG, QD
     Route: 048
     Dates: start: 20130102, end: 20130109
  2. OLANZAPINE [Suspect]
     Dosage: 7.5 MG, QD
     Route: 048
     Dates: start: 20130110, end: 20130117
  3. AMISULPRID [Suspect]
     Indication: PRODUCT USED FOR UNKNOWN INDICATION
     Dosage: 200 MG, QD
     Route: 048
     Dates: start: 20130125, end: 20130130
  4. MIRTAZAPIN [Concomitant]
     Dosage: 15 MG, QD
     Route: 048
     Dates: start: 20121209
  5. MIRTAZAPIN [Concomitant]
     Dosage: 30 MG, QD
     Route: 048
     Dates: start: 20121210, end: 20121219
  6. MIRTAZAPIN [Concomitant]
     Dosage: 45 MG, QD
     Route: 048
     Dates: start: 20121220

REACTIONS (8)
  - Hepatic steatosis [Unknown]
  - Blood creatinine increased [Unknown]
  - Irritability [Unknown]
  - Gastric disorder [Unknown]
  - Hepatic enzyme increased [Recovered/Resolved]
  - Gamma-glutamyltransferase increased [Unknown]
  - Aspartate aminotransferase increased [Unknown]
  - Alanine aminotransferase increased [Unknown]
